FAERS Safety Report 5465124-9 (Version None)
Quarter: 2007Q3

REPORT INFORMATION
  Report Type: 
  Country: None (occurrence: None)
  Receive Date: 20070820
  Receipt Date: 20070424
  Transmission Date: 20080115
  Serious: No
  Sender: FDA-Public Use
  Company Number: WAES 0704USA05573

PATIENT
  Age: 68 Year
  Sex: Female
  Weight: 74.3899 kg

DRUGS (6)
  1. JANUVIA [Suspect]
     Dosage: 50 MG/DAILY/PO   50 MG/DAILY/PO
     Route: 048
     Dates: start: 20070101, end: 20070101
  2. JANUVIA [Suspect]
     Dosage: 50 MG/DAILY/PO   50 MG/DAILY/PO
     Route: 048
     Dates: start: 20070112, end: 20070130
  3. AVAPRO [Concomitant]
  4. DYAZIDE [Concomitant]
  5. LEVOTHROID [Concomitant]
  6. ASPIRIN [Concomitant]

REACTIONS (2)
  - PRURITUS [None]
  - RASH [None]
